FAERS Safety Report 6190779-3 (Version None)
Quarter: 2009Q2

REPORT INFORMATION
  Report Type: 
  Country: None (occurrence: None)
  Receive Date: 20090514
  Receipt Date: 20090508
  Transmission Date: 20091009
  Serious: Yes (Other)
  Sender: FDA-Public Use
  Company Number: US-ELI_LILLY_AND_COMPANY-US200810006746

PATIENT
  Sex: Female

DRUGS (21)
  1. FORTEO [Suspect]
     Indication: OSTEOPOROSIS
     Dosage: 20 UG, DAILY (1/D)
     Route: 058
     Dates: start: 20070601, end: 20070101
  2. FORTEO [Suspect]
     Dosage: 20 UG, TWO DAYS ON AND TWO DAYS OFF
     Route: 058
     Dates: start: 20070901, end: 20071001
  3. FORTEO [Suspect]
     Dosage: 20 UG, DAILY (1/D)
     Route: 058
     Dates: start: 20070101
  4. ASPIRIN [Concomitant]
     Dosage: 81 MG, DAILY (1/D)
  5. ASPIRIN [Concomitant]
     Dosage: 325 MG, DAILY (1/D)
  6. CALCIUM WITH VITAMIN D [Concomitant]
     Dosage: 500 MG, 3/D
  7. SYNTHROID [Concomitant]
     Dosage: 50 UG, QOD, ALTERNATING DAYS
     Dates: end: 20070101
  8. SYNTHROID [Concomitant]
     Dosage: 75 UG, QOD, ALTERNATING DAYS
     Dates: end: 20070101
  9. SYNTHROID [Concomitant]
     Dosage: 50 UG, DAILY (1/D)
     Dates: start: 20070301, end: 20070101
  10. SYNTHROID [Concomitant]
     Dosage: 75 UG, DAILY (1/D)
     Dates: start: 20070401
  11. PULMICORT-100 [Concomitant]
     Dosage: 200 UG, 2/D
  12. NEXIUM [Concomitant]
     Dosage: 40 MG, DAILY (1/D)
  13. CEPHALEXIN [Concomitant]
     Indication: ROSACEA
     Dosage: 500 MG, DAILY (1/D)
  14. ALLEGRA [Concomitant]
     Dosage: 180 MG, DAILY (1/D)
  15. VITACON [Concomitant]
  16. IMITREX [Concomitant]
     Dosage: 50 MG, AS NEEDED
  17. FIORINAL-C [Concomitant]
     Dosage: UNK, AS NEEDED
  18. TEGRETOL [Concomitant]
     Indication: HEADACHE
     Dosage: UNK, AS NEEDED
  19. PRAVASTATIN [Concomitant]
     Dosage: 20 MG, DAILY (1/D)
  20. PRAVASTATIN [Concomitant]
     Dosage: 40 MG, EACH EVENING
  21. PRAVASTATIN [Concomitant]
     Dosage: 20 MG, EACH EVENING

REACTIONS (4)
  - BALANCE DISORDER [None]
  - FALL [None]
  - INNER EAR DISORDER [None]
  - LOSS OF CONSCIOUSNESS [None]
